FAERS Safety Report 4541034-6 (Version None)
Quarter: 2004Q4

REPORT INFORMATION
  Report Type: 
  Country: None (occurrence: None)
  Receive Date: 20041228
  Receipt Date: 20041217
  Transmission Date: 20050328
  Serious: Yes (Hospitalization)
  Sender: FDA-Public Use
  Company Number: 2004-123632-NL

PATIENT
  Age: 42 Year
  Sex: Male
  Weight: 50.9 kg

DRUGS (4)
  1. REMERON [Suspect]
     Indication: DEPRESSION
     Dosage: 45 MG QD ORAL
     Route: 048
     Dates: start: 20041201
  2. REMERON [Suspect]
     Indication: DEPRESSION
     Dosage: 45 MG QD ORAL
     Route: 048
     Dates: start: 20041210, end: 20041213
  3. ABILIFY [Suspect]
     Indication: PSYCHOTIC DISORDER
     Dosage: ORAL
     Route: 048
     Dates: start: 20041201
  4. ABILIFY [Suspect]
     Indication: PSYCHOTIC DISORDER
     Dosage: ORAL
     Route: 048
     Dates: start: 20041210, end: 20041213

REACTIONS (4)
  - OEDEMA GENITAL [None]
  - PAINFUL ERECTION [None]
  - POST PROCEDURAL OEDEMA [None]
  - PRIAPISM [None]
